FAERS Safety Report 9783044 (Version 1)
Quarter: 2013Q4

REPORT INFORMATION
  Report Type: Spontaneous
  Country: US (occurrence: None)
  Receive Date: 20131224
  Receipt Date: 20131224
  Transmission Date: 20140711
  Serious: Yes (Other)
  Sender: FDA-Public Use
  Company Number: None

PATIENT
  Age: 61 Year
  Sex: Male
  Weight: 144.24 kg

DRUGS (1)
  1. CLINDAMYCIN [Suspect]
     Indication: LOCALISED INFECTION
     Dosage: 1 CAPSULE  THREE TIMES DAILY  TAKEN BY MOUTH
     Route: 048
     Dates: start: 20131220, end: 20131223

REACTIONS (4)
  - Flatulence [None]
  - Malaise [None]
  - Abdominal pain upper [None]
  - Haematochezia [None]
